FAERS Safety Report 10056073 (Version 1)
Quarter: 2014Q2

REPORT INFORMATION
  Report Type: Spontaneous
  Country: AU (occurrence: None)
  Receive Date: 20140401
  Receipt Date: 20140401
  Transmission Date: 20141212
  Serious: Yes (Other)
  Sender: FDA-Public Use
  Company Number: AUR-APL-2014-04024

PATIENT
  Age: 53 Year
  Sex: Male

DRUGS (4)
  1. OLANZAPINE (OLANZAPINE) [Suspect]
     Indication: DELUSION
  2. QUETIAPINE (QUETIAPINE) [Suspect]
     Indication: DELUSION
     Dosage: (25 MG), UNKNOWN
  3. CITALOPRAM (CITALOPRAM) [Concomitant]
  4. LEVODOPA  W/ BENSERAZIDE (LEVODOPA W/BENSERAZIDE) [Concomitant]

REACTIONS (1)
  - Parkinsonism [None]
